FAERS Safety Report 6434753-8 (Version None)
Quarter: 2009Q4

REPORT INFORMATION
  Report Type: 
  Country: None (occurrence: None)
  Receive Date: 20091110
  Receipt Date: 20091104
  Transmission Date: 20100525
  Serious: Yes (Death)
  Sender: FDA-Public Use
  Company Number: SK-PFIZER INC-2009293374

PATIENT
  Age: 74 Year
  Sex: Male
  Weight: 69 kg

DRUGS (4)
  1. TOLTERODINE TARTRATE [Suspect]
     Indication: HYPERTONIC BLADDER
     Dosage: 4 MG, 1X/DAY
     Route: 048
     Dates: start: 20080730, end: 20081012
  2. LOCREN [Concomitant]
     Dosage: 20 MG, 1X/DAY
  3. LACIPIL [Concomitant]
     Dosage: 4 MG, 1X/DAY
  4. ATORVASTATIN CALCIUM [Concomitant]
     Dosage: 10 MG, 1X/DAY

REACTIONS (1)
  - INTRACRANIAL ANEURYSM [None]
